FAERS Safety Report 7847008-1 (Version None)
Quarter: 2011Q4

REPORT INFORMATION
  Report Type: 
  Country: None (occurrence: None)
  Receive Date: 20111025
  Receipt Date: 20111010
  Transmission Date: 20120403
  Serious: Yes (Other)
  Sender: FDA-Public Use
  Company Number: JP-SPECTRUM PHARMACEUTICALS, INC.-11-Z-JP-00302

PATIENT

DRUGS (11)
  1. RITUXIMAB [Suspect]
     Indication: FOLLICLE CENTRE LYMPHOMA, FOLLICULAR GRADE I, II, III STAGE III
     Dosage: 250 MG/M2, SINGLE
     Route: 041
     Dates: start: 20100413, end: 20100413
  2. RITUXIMAB [Suspect]
     Dosage: 250 MG/M2, SINGLE
     Route: 041
     Dates: start: 20100406, end: 20100406
  3. ENALAPRIL MALEATE [Concomitant]
     Dosage: UNK
     Dates: start: 20100413
  4. CARVEDILOL [Concomitant]
     Dosage: UNK
     Dates: start: 20100413
  5. ASPIRIN [Concomitant]
     Dosage: UNK
     Dates: start: 20100413, end: 20100602
  6. LASIX [Concomitant]
     Dosage: UNK
     Dates: start: 20100413
  7. ALDACTONE [Concomitant]
     Dosage: UNK
     Dates: start: 20100413, end: 20100418
  8. ACETAMINOPHEN [Concomitant]
     Dosage: UNK
     Dates: start: 20100413, end: 20100413
  9. POLARAMINE                         /00043702/ [Concomitant]
     Dosage: UNK
     Dates: start: 20100413, end: 20100413
  10. ZEVALIN [Suspect]
     Indication: FOLLICLE CENTRE LYMPHOMA, FOLLICULAR GRADE I, II, III STAGE III
     Dosage: 767 MBQ, SINGLE
     Route: 042
     Dates: start: 20100413, end: 20100413
  11. ZEVALIN [Suspect]
     Dosage: 130 MBQ, SINGLE
     Route: 042
     Dates: start: 20100406, end: 20100406

REACTIONS (9)
  - ANAEMIA [None]
  - SEPSIS [None]
  - WHITE BLOOD CELL COUNT DECREASED [None]
  - FUNGAL INFECTION [None]
  - MALNUTRITION [None]
  - PROTEIN TOTAL DECREASED [None]
  - PLATELET COUNT DECREASED [None]
  - DIARRHOEA [None]
  - ENTEROCOLITIS INFECTIOUS [None]
